FAERS Safety Report 21317078 (Version 3)
Quarter: 2022Q4

REPORT INFORMATION
  Report Type: Spontaneous
  Country: US (occurrence: US)
  Receive Date: 20220911
  Receipt Date: 20221216
  Transmission Date: 20230113
  Serious: No
  Sender: FDA-Public Use
  Company Number: US-SA-SAC20220822001545

PATIENT
  Age: 60 Year
  Sex: Female

DRUGS (1)
  1. DUPIXENT [Suspect]
     Active Substance: DUPILUMAB
     Indication: Dermatitis atopic
     Dosage: 300 MG, QOW
     Route: 058
     Dates: start: 20220803

REACTIONS (9)
  - Eyelid irritation [Recovering/Resolving]
  - Erythema of eyelid [Recovering/Resolving]
  - Skin exfoliation [Recovering/Resolving]
  - Eye irritation [Recovering/Resolving]
  - Discomfort [Not Recovered/Not Resolved]
  - Dermatitis atopic [Recovering/Resolving]
  - Rash [Not Recovered/Not Resolved]
  - Arthralgia [Unknown]
  - Product dose omission issue [Unknown]

NARRATIVE: CASE EVENT DATE: 20220811
